FAERS Safety Report 9216039 (Version 3)
Quarter: 2013Q3

REPORT INFORMATION
  Report Type: Spontaneous
  Country: JP (occurrence: JP)
  Receive Date: 20130408
  Receipt Date: 20130813
  Transmission Date: 20140515
  Serious: Yes (Other)
  Sender: FDA-Public Use
  Company Number: JP-JNJFOC-20130319108

PATIENT
  Age: 63 Year
  Sex: Female

DRUGS (1)
  1. DUROTEP MT [Suspect]
     Indication: SPINAL PAIN
     Route: 062

REACTIONS (2)
  - Stress cardiomyopathy [Recovering/Resolving]
  - Epilepsy [Recovered/Resolved]
